FAERS Safety Report 8970173 (Version 1)
Quarter: 2012Q4

REPORT INFORMATION
  Report Type: 
  Country: GB (occurrence: GB)
  Receive Date: 20121218
  Receipt Date: 20121218
  Transmission Date: 20130627
  Serious: Yes (Death)
  Sender: FDA-Public Use
  Company Number: GB-PFIZER INC-2012318254

PATIENT

DRUGS (1)
  1. AXITINIB [Suspect]

REACTIONS (1)
  - Death [Fatal]
